FAERS Safety Report 20870587 (Version 1)
Quarter: 2022Q2

REPORT INFORMATION
  Report Type: Spontaneous
  Country: JP (occurrence: JP)
  Receive Date: 20220525
  Receipt Date: 20220525
  Transmission Date: 20220720
  Serious: Yes (Hospitalization)
  Sender: FDA-Public Use
  Company Number: JP-ROCHE-3101536

PATIENT
  Age: 47 Year
  Sex: Female
  Weight: 57 kg

DRUGS (14)
  1. XELODA [Suspect]
     Active Substance: CAPECITABINE
     Indication: Inflammatory carcinoma of the breast
     Dosage: 1500 MILLIGRAM, BID
     Route: 048
     Dates: start: 20220120, end: 20220126
  2. TYKERB [Suspect]
     Active Substance: LAPATINIB DITOSYLATE
     Indication: Inflammatory carcinoma of the breast
     Dosage: 1250 MILLIGRAM,
     Route: 048
     Dates: start: 20220120, end: 20220126
  3. MIYABM [Concomitant]
  4. LOPERAMIDE HYDROCHLORIDE [Concomitant]
     Active Substance: LOPERAMIDE HYDROCHLORIDE
  5. METOCLOPRAMIDE [Concomitant]
     Active Substance: METOCLOPRAMIDE
  6. SODIUM GUALENATE [Concomitant]
     Active Substance: SODIUM GUALENATE
  7. FAMOTIDINE [Concomitant]
     Active Substance: FAMOTIDINE
  8. HYDROMORPHONE HYDROCHLORIDE [Concomitant]
     Active Substance: HYDROMORPHONE HYDROCHLORIDE
  9. CELECOXIB [Concomitant]
     Active Substance: CELECOXIB
  10. MIROGABALIN BESYLATE [Concomitant]
     Active Substance: MIROGABALIN BESYLATE
  11. SYMPROIC [Concomitant]
     Active Substance: NALDEMEDINE
  12. CALCIUM CARBONATE\CHOLECALCIFEROL\MAGNESIUM CARBONATE [Concomitant]
     Active Substance: CALCIUM CARBONATE\CHOLECALCIFEROL\MAGNESIUM CARBONATE
  13. CALCIUM ASPARTATE [Concomitant]
     Active Substance: CALCIUM ASPARTATE
  14. OLANZAPINE [Concomitant]
     Active Substance: OLANZAPINE

REACTIONS (3)
  - Acute kidney injury [Unknown]
  - Vomiting [Recovering/Resolving]
  - Diarrhoea [Recovered/Resolved]

NARRATIVE: CASE EVENT DATE: 20220122
